FAERS Safety Report 10699702 (Version 2)
Quarter: 2015Q1

REPORT INFORMATION
  Report Type: Spontaneous
  Country: JP (occurrence: None)
  Receive Date: 20141229
  Receipt Date: 20150205
  Transmission Date: 20150721
  Serious: Yes (Hospitalization)
  Sender: FDA-Public Use
  Company Number: FK201406319

PATIENT
  Age: 66 Year
  Sex: Male

DRUGS (9)
  1. PIPERACILLINE (PIPERACILLIN SODIUM) [Concomitant]
  2. SEVOFLURANE (SEVOFLURANE) [Concomitant]
  3. RED BLOOD CELL (RED B LOOD CELLS) [Concomitant]
  4. ROCURONIUM BROMIDE (ROCURONIUM BROMIDE) [Concomitant]
     Active Substance: ROCURONIUM BROMIDE
  5. RINGER SOLUTION BICARBONATE (RINGER AGUETTANT) [Concomitant]
  6. VOLUVEN [Suspect]
     Active Substance: HYDROXYETHYL STARCH 130/0.4
     Indication: FLUID REPLACEMENT
     Route: 042
     Dates: start: 20141204, end: 20141204
  7. EPHEDRINE (EPHEDRINE) [Concomitant]
  8. REMIFENTANIL (REMIFENTANYL) [Concomitant]
  9. FENTANYL CITRATE (FENTANYL CITRATE) [Concomitant]

REACTIONS (1)
  - Renal failure [None]

NARRATIVE: CASE EVENT DATE: 20141208
